FAERS Safety Report 7096435-1 (Version None)
Quarter: 2010Q4

REPORT INFORMATION
  Report Type: 
  Country: None (occurrence: None)
  Receive Date: 20101101
  Receipt Date: 20101018
  Transmission Date: 20110411
  Serious: Yes (Hospitalization)
  Sender: FDA-Public Use
  Company Number: 012066

PATIENT
  Sex: Female
  Weight: 58 kg

DRUGS (6)
  1. CIMZIA [Suspect]
     Indication: RHEUMATOID ARTHRITIS
     Dosage: (400 MG 1X/2 WEEKS SUBCUTANEOUS), 9200 MG 1X/2 WEEKS SUBCUTANEOUS)
     Route: 058
     Dates: start: 20051214, end: 20080206
  2. CIMZIA [Suspect]
     Indication: RHEUMATOID ARTHRITIS
     Dosage: (400 MG 1X/2 WEEKS SUBCUTANEOUS), 9200 MG 1X/2 WEEKS SUBCUTANEOUS)
     Route: 058
     Dates: start: 20080220, end: 20100513
  3. METHOTREXATE [Concomitant]
  4. DICLOFENAC SODIUM [Concomitant]
  5. FOLIC ACID [Concomitant]
  6. ENALAPRIL MALEATE [Concomitant]

REACTIONS (9)
  - CHOLELITHIASIS [None]
  - DRUG INEFFECTIVE [None]
  - ENDOMETRITIS [None]
  - GOITRE [None]
  - OVARIAN MASS [None]
  - PANCREATITIS CHRONIC [None]
  - PERITONSILLAR ABSCESS [None]
  - PULMONARY TUBERCULOSIS [None]
  - UPPER RESPIRATORY TRACT INFECTION [None]
